FAERS Safety Report 10014698 (Version 1)
Quarter: 2014Q1

REPORT INFORMATION
  Report Type: Spontaneous
  Country: US (occurrence: US)
  Receive Date: 20140317
  Receipt Date: 20140317
  Transmission Date: 20141002
  Serious: Yes (Hospitalization)
  Sender: FDA-Public Use
  Company Number: US-BAYER-2014-037561

PATIENT
  Age: 27 Year
  Sex: Female
  Weight: 60.77 kg

DRUGS (9)
  1. YAZ [Suspect]
  2. PROZAC [Concomitant]
     Dosage: 20 MG, UNK
  3. ALBUTEROL [Concomitant]
  4. ATROVENT [Concomitant]
  5. DILAUDID [Concomitant]
  6. PROTONIX [Concomitant]
  7. AUGMENTIN [Concomitant]
  8. CEFTIN [Concomitant]
  9. LEVAQUIN [Concomitant]

REACTIONS (2)
  - Pulmonary embolism [Recovered/Resolved]
  - Cholecystitis chronic [None]
